FAERS Safety Report 13642555 (Version 1)
Quarter: 2017Q2

REPORT INFORMATION
  Report Type: Spontaneous
  Country: US (occurrence: US)
  Receive Date: 20170612
  Receipt Date: 20170612
  Transmission Date: 20170830
  Serious: No
  Sender: FDA-Public Use
  Company Number: US-SEPTODONT-201603545

PATIENT
  Age: 48 Year
  Sex: Male

DRUGS (4)
  1. SEPTOCAINE AND EPINEPHRINE [Suspect]
     Active Substance: ARTICAINE HYDROCHLORIDE\EPINEPHRINE BITARTRATE
     Indication: LOCAL ANAESTHESIA
     Dosage: INFILTRATION IN PALATAL HEALTHY TISSUE WITH 1/2^ 30G NEEDLE. 0.5 CARPULE FROM DRUG #1, #2, #3, OR #4
     Route: 004
     Dates: start: 20160615, end: 20160615
  2. SEPTOCAINE AND EPINEPHRINE [Suspect]
     Active Substance: ARTICAINE HYDROCHLORIDE\EPINEPHRINE BITARTRATE
     Indication: LOCAL ANAESTHESIA
     Dosage: INFILTRATION IN PALATAL HEALTHY TISSUE WITH 1/2^ 30G NEEDLE. 0.5 CARPULE FROM DRUG #1, #2, #3, OR #4
     Route: 004
     Dates: start: 20160615, end: 20160615
  3. SEPTOCAINE AND EPINEPHRINE [Suspect]
     Active Substance: ARTICAINE HYDROCHLORIDE\EPINEPHRINE BITARTRATE
     Indication: LOCAL ANAESTHESIA
     Dosage: INFILTRATION IN PALATAL HEALTHY TISSUE WITH 1/2^ 30G NEEDLE. 0.5 CARPULE FROM DRUG #1, #2, #3, OR #4
     Route: 004
     Dates: start: 20160615, end: 20160615
  4. SEPTOCAINE AND EPINEPHRINE [Suspect]
     Active Substance: ARTICAINE HYDROCHLORIDE\EPINEPHRINE BITARTRATE
     Indication: LOCAL ANAESTHESIA
     Dosage: INFILTRATION IN PALATAL HEALTHY TISSUE WITH 1/2^ 30G NEEDLE. 0.5 CARPULE FROM DRUG #1, #2, #3, OR #4
     Route: 004
     Dates: start: 20160615, end: 20160615

REACTIONS (3)
  - Hypoaesthesia [Unknown]
  - Mouth ulceration [Unknown]
  - Discomfort [Unknown]

NARRATIVE: CASE EVENT DATE: 20160615
